FAERS Safety Report 12047303 (Version 1)
Quarter: 2016Q1

REPORT INFORMATION
  Report Type: Spontaneous
  Country: US (occurrence: US)
  Receive Date: 20160208
  Receipt Date: 20160208
  Transmission Date: 20160526
  Serious: No
  Sender: FDA-Public Use
  Company Number: US-MEDA-2016010088

PATIENT

DRUGS (1)
  1. AEROSPAN [Suspect]
     Active Substance: FLUNISOLIDE
     Indication: ASTHMA

REACTIONS (1)
  - Drug ineffective [Not Recovered/Not Resolved]
